FAERS Safety Report 6673844-3 (Version None)
Quarter: 2010Q2

REPORT INFORMATION
  Report Type: 
  Country: None (occurrence: None)
  Receive Date: 20100407
  Receipt Date: 20100401
  Transmission Date: 20101027
  Serious: Yes (Hospitalization, Other)
  Sender: FDA-Public Use
  Company Number: 2010SP016763

PATIENT
  Age: 37 Year
  Sex: Female

DRUGS (4)
  1. TEMODAL [Suspect]
     Indication: GLIOBLASTOMA
     Dosage: 75 MG/M2;
     Dates: start: 20100111, end: 20100219
  2. DEXAMETHASONE TAB [Concomitant]
  3. ESOMEPRAZOLE MAGNESIUM [Concomitant]
  4. LEVETIRACETAM [Concomitant]

REACTIONS (1)
  - PANCREATITIS [None]
